FAERS Safety Report 5765446-8 (Version None)
Quarter: 2008Q2

REPORT INFORMATION
  Report Type: 
  Country: None (occurrence: None)
  Receive Date: 20080611
  Receipt Date: 20080604
  Transmission Date: 20081010
  Serious: Yes (Other)
  Sender: FDA-Public Use
  Company Number: A0722156A

PATIENT
  Age: 55 Year
  Sex: Male

DRUGS (3)
  1. ADVAIR DISKUS 100/50 [Suspect]
     Indication: ASTHMA
     Dosage: 1PUFF TWICE PER DAY
     Route: 055
     Dates: start: 20071201
  2. ALBUTEROL [Concomitant]
  3. PAIN MEDICATION [Concomitant]
     Indication: BACK PAIN

REACTIONS (8)
  - ASTHMA [None]
  - DRUG INEFFECTIVE [None]
  - DYSPNOEA [None]
  - FEELING ABNORMAL [None]
  - HEART RATE INCREASED [None]
  - HYPERHIDROSIS [None]
  - INSOMNIA [None]
  - MALAISE [None]
